FAERS Safety Report 8771370 (Version 1)
Quarter: 2012Q4

REPORT INFORMATION
  Report Type: 
  Country: US (occurrence: US)
  Receive Date: 20120905
  Receipt Date: 20120905
  Transmission Date: 20130627
  Serious: No
  Sender: FDA-Public Use
  Company Number: US-ASTRAZENECA-2012SE57611

PATIENT
  Age: 54 Year
  Sex: Male

DRUGS (2)
  1. CRESTOR [Suspect]
     Route: 048
  2. HCTZ [Concomitant]

REACTIONS (9)
  - Cardiac disorder [Unknown]
  - Cardiac discomfort [Unknown]
  - Angiopathy [Unknown]
  - Paraesthesia [Unknown]
  - Stress [Unknown]
  - Pain [Unknown]
  - Nephrolithiasis [Unknown]
  - Muscle tightness [Unknown]
  - Drug dose omission [Unknown]
